FAERS Safety Report 4562795-6 (Version None)
Quarter: 2005Q1

REPORT INFORMATION
  Report Type: 
  Country: None (occurrence: None)
  Receive Date: 20050121
  Receipt Date: 20050110
  Transmission Date: 20050727
  Serious: Yes (Other)
  Sender: FDA-Public Use
  Company Number: 2003037639

PATIENT
  Age: 51 Year
  Sex: Female
  Weight: 68 kg

DRUGS (6)
  1. TAHOR (ATORVASTATIN) [Suspect]
     Indication: DYSLIPIDAEMIA
     Dosage: 40 MG (DAILY) ORAL
     Route: 048
  2. CYAMEMAZINE (CYAMEMAZINE) [Concomitant]
  3. HYDROXYZINE [Concomitant]
  4. BROMAZEPAM(BROMAZEPAM) [Concomitant]
  5. HYDROCORTISONE [Concomitant]
  6. FENTANYL [Concomitant]

REACTIONS (5)
  - ERYTHEMA [None]
  - MYCOSIS FUNGOIDES [None]
  - PAIN [None]
  - PHOTOSENSITIVITY REACTION [None]
  - PRURITUS [None]
